FAERS Safety Report 20938938 (Version 1)
Quarter: 2022Q2

REPORT INFORMATION
  Report Type: Report from Study
  Country: US (occurrence: US)
  Receive Date: 20220609
  Receipt Date: 20220609
  Transmission Date: 20220721
  Serious: Yes (Hospitalization)
  Sender: FDA-Public Use
  Company Number: US-MYLANLABS-2022M1043591

PATIENT
  Age: 77 Year
  Sex: Male

DRUGS (20)
  1. QUETIAPINE [Suspect]
     Active Substance: QUETIAPINE
     Indication: Dementia with Lewy bodies
     Dosage: UNK
  2. QUETIAPINE [Suspect]
     Active Substance: QUETIAPINE
     Indication: Neuropsychiatric symptoms
  3. OLANZAPINE [Suspect]
     Active Substance: OLANZAPINE
     Indication: Dementia with Lewy bodies
     Dosage: UNK
  4. OLANZAPINE [Suspect]
     Active Substance: OLANZAPINE
     Indication: Neuropsychiatric symptoms
  5. RISPERIDONE [Suspect]
     Active Substance: RISPERIDONE
     Indication: Dementia with Lewy bodies
     Dosage: UNK
  6. RISPERIDONE [Suspect]
     Active Substance: RISPERIDONE
     Indication: Neuropsychiatric symptoms
  7. VALPROIC ACID [Suspect]
     Active Substance: VALPROIC ACID
     Indication: Dementia with Lewy bodies
     Dosage: UNK
  8. VALPROIC ACID [Suspect]
     Active Substance: VALPROIC ACID
     Indication: Neuropsychiatric symptoms
  9. DOXEPIN [Suspect]
     Active Substance: DOXEPIN
     Indication: Dementia with Lewy bodies
     Dosage: UNK
  10. DOXEPIN [Suspect]
     Active Substance: DOXEPIN
     Indication: Neuropsychiatric symptoms
  11. GALANTAMINE [Suspect]
     Active Substance: GALANTAMINE
     Indication: Dementia with Lewy bodies
     Dosage: UNK
  12. GALANTAMINE [Suspect]
     Active Substance: GALANTAMINE
     Indication: Neuropsychiatric symptoms
  13. GABAPENTIN [Suspect]
     Active Substance: GABAPENTIN
     Indication: Dementia with Lewy bodies
     Dosage: UNK
  14. GABAPENTIN [Suspect]
     Active Substance: GABAPENTIN
     Indication: Neuropsychiatric symptoms
  15. TEMAZEPAM [Suspect]
     Active Substance: TEMAZEPAM
     Indication: Dementia with Lewy bodies
     Dosage: UNK
  16. TEMAZEPAM [Suspect]
     Active Substance: TEMAZEPAM
     Indication: Neuropsychiatric symptoms
  17. OXCARBAZEPINE [Suspect]
     Active Substance: OXCARBAZEPINE
     Indication: Dementia with Lewy bodies
     Dosage: UNK
  18. OXCARBAZEPINE [Suspect]
     Active Substance: OXCARBAZEPINE
     Indication: Neuropsychiatric symptoms
  19. ZIPRASIDONE [Suspect]
     Active Substance: ZIPRASIDONE
     Indication: Dementia with Lewy bodies
     Dosage: UNK
  20. ZIPRASIDONE [Suspect]
     Active Substance: ZIPRASIDONE
     Indication: Neuropsychiatric symptoms

REACTIONS (1)
  - Treatment failure [Unknown]
